FAERS Safety Report 7335578-1 (Version None)
Quarter: 2011Q1

REPORT INFORMATION
  Report Type: 
  Country: None (occurrence: None)
  Receive Date: 20110307
  Receipt Date: 20110225
  Transmission Date: 20110831
  Serious: Yes (Other)
  Sender: FDA-Public Use
  Company Number: US-MYLANLABS-2011S1003918

PATIENT
  Age: 38 Year
  Sex: Female

DRUGS (2)
  1. ZONISAMIDE [Suspect]
     Indication: CONVULSION
     Route: 048
     Dates: start: 20110201, end: 20110201
  2. ZONISAMIDE [Suspect]
     Route: 048
     Dates: start: 20110201

REACTIONS (4)
  - DIZZINESS [None]
  - VISION BLURRED [None]
  - CONVULSION [None]
  - INSOMNIA [None]
